FAERS Safety Report 11493000 (Version 1)
Quarter: 2015Q3

REPORT INFORMATION
  Report Type: Spontaneous
  Country: US (occurrence: None)
  Receive Date: 20150910
  Receipt Date: 20150910
  Transmission Date: 20151125
  Serious: No
  Sender: FDA-Public Use
  Company Number: None

PATIENT
  Age: 55 Year
  Sex: Male

DRUGS (1)
  1. HARVONI [Suspect]
     Active Substance: LEDIPASVIR\SOFOSBUVIR
     Indication: HEPATITIS C
     Route: 048
     Dates: start: 20150629, end: 20150821

REACTIONS (4)
  - Heart rate increased [None]
  - Chest pain [None]
  - Wrong technique in product usage process [None]
  - Drug dose omission [None]

NARRATIVE: CASE EVENT DATE: 20150901
